FAERS Safety Report 22604394 (Version 1)
Quarter: 2023Q2

REPORT INFORMATION
  Report Type: Report from Study
  Country: DE (occurrence: DE)
  Receive Date: 20230615
  Receipt Date: 20230615
  Transmission Date: 20230722
  Serious: Yes (Hospitalization, Other)
  Sender: FDA-Public Use
  Company Number: DE-ROCHE-2811899

PATIENT
  Age: 60 Year
  Sex: Female

DRUGS (4)
  1. BOTOX [Suspect]
     Active Substance: ONABOTULINUMTOXINA
     Indication: Product used for unknown indication
     Dosage: TIME INTERVAL: AS NECESSARY: DATE OF TREATMENT ON 08/MAY/2023
     Route: 065
     Dates: start: 20230508, end: 20230508
  2. DALFAMPRIDINE [Concomitant]
     Active Substance: DALFAMPRIDINE
     Indication: Product used for unknown indication
     Dosage: 1-0-1
  3. OCREVUS [Suspect]
     Active Substance: OCRELIZUMAB
     Indication: Primary progressive multiple sclerosis
     Route: 040
     Dates: start: 20200220
  4. PROPIONIC ACID [Concomitant]
     Active Substance: PROPIONIC ACID
     Indication: Product used for unknown indication

REACTIONS (11)
  - Gait inability [Recovered/Resolved]
  - Bladder irritation [Recovered/Resolved]
  - Blood urine present [Unknown]
  - Ligament injury [Not Recovered/Not Resolved]
  - Gait disturbance [Not Recovered/Not Resolved]
  - Cataract [Recovered/Resolved]
  - Cystitis noninfective [Recovered/Resolved]
  - Stress urinary incontinence [Not Recovered/Not Resolved]
  - Joint effusion [Recovered/Resolved]
  - Muscular weakness [Not Recovered/Not Resolved]
  - Cystitis noninfective [Unknown]

NARRATIVE: CASE EVENT DATE: 20200901
